FAERS Safety Report 4533349-2 (Version None)
Quarter: 2004Q4

REPORT INFORMATION
  Report Type: 
  Country: None (occurrence: None)
  Receive Date: 20041221
  Receipt Date: 20041215
  Transmission Date: 20050328
  Serious: Yes (Hospitalization)
  Sender: FDA-Public Use
  Company Number: PHRM2004FR03687

PATIENT
  Age: 77 Year
  Sex: Female

DRUGS (6)
  1. TRILEPTAL [Suspect]
     Dosage: 300 MG, BID
     Route: 048
     Dates: start: 20040901, end: 20040927
  2. ACETAMINOPHEN [Concomitant]
     Route: 048
  3. ESOMEPRAZOLE [Concomitant]
     Dosage: 1 DF, QD
     Route: 048
  4. ELISOR [Concomitant]
     Dosage: UNK, UNK
     Route: 048
     Dates: start: 19940101
  5. TOCO [Concomitant]
     Dosage: UNK, UNK
     Route: 048
     Dates: start: 19940101
  6. APROVEL [Concomitant]
     Dosage: UNK, UNK
     Route: 048
     Dates: start: 20020101

REACTIONS (15)
  - ANAEMIA [None]
  - BIOPSY SKIN ABNORMAL [None]
  - BRAIN OEDEMA [None]
  - DERMATITIS EXFOLIATIVE [None]
  - ECZEMA [None]
  - FACE OEDEMA [None]
  - FALL [None]
  - HYPERTHERMIA [None]
  - LEUKOCYTOCLASTIC VASCULITIS [None]
  - LOSS OF CONSCIOUSNESS [None]
  - MALAISE [None]
  - MUCOUS MEMBRANE DISORDER [None]
  - PRURITUS [None]
  - TOXIC SKIN ERUPTION [None]
  - URTICARIA [None]
